FAERS Safety Report 6166458-5 (Version None)
Quarter: 2009Q2

REPORT INFORMATION
  Report Type: 
  Country: None (occurrence: None)
  Receive Date: 20090422
  Receipt Date: 20090408
  Transmission Date: 20091009
  Serious: Yes (Hospitalization)
  Sender: FDA-Public Use
  Company Number: 233925K09USA

PATIENT
  Age: 58 Year
  Sex: Female

DRUGS (3)
  1. REBIF [Suspect]
     Indication: MULTIPLE SCLEROSIS
     Dosage: 44 MCG, 3 IN 1 WEEKS, SUBCUTANEOUS
     Route: 058
     Dates: start: 20030523
  2. ZIAC [Concomitant]
  3. SYNTHROID [Concomitant]

REACTIONS (7)
  - ASTHENIA [None]
  - DEHYDRATION [None]
  - DIARRHOEA [None]
  - LETHARGY [None]
  - NAUSEA [None]
  - VIRAL INFECTION [None]
  - VOMITING [None]
